FAERS Safety Report 23625143 (Version 2)
Quarter: 2024Q1

REPORT INFORMATION
  Report Type: Other
  Country: SK (occurrence: None)
  Receive Date: 20240313
  Receipt Date: 20240327
  Transmission Date: 20240409
  Serious: No
  Sender: FDA-Public Use
  Company Number: SK-ROCHE-3519402

PATIENT
  Sex: Female

DRUGS (1)
  1. OCREVUS [Suspect]
     Active Substance: OCRELIZUMAB
     Indication: Product used for unknown indication
     Route: 065

REACTIONS (1)
  - Tuberculosis [Unknown]
